FAERS Safety Report 15386832 (Version 1)
Quarter: 2018Q3

REPORT INFORMATION
  Report Type: Spontaneous
  Country: US (occurrence: US)
  Receive Date: 20180914
  Receipt Date: 20180914
  Transmission Date: 20181010
  Serious: No
  Sender: FDA-Public Use
  Company Number: US-PFIZER INC-2018371438

PATIENT
  Age: 64 Year
  Sex: Male

DRUGS (1)
  1. EUCRISA [Suspect]
     Active Substance: CRISABOROLE
     Indication: DERMATITIS ATOPIC
     Dosage: UNK

REACTIONS (4)
  - Drug ineffective [Unknown]
  - Dermatitis atopic [Unknown]
  - Haemorrhoidal haemorrhage [Not Recovered/Not Resolved]
  - Condition aggravated [Unknown]
